FAERS Safety Report 17843477 (Version 1)
Quarter: 2020Q2

REPORT INFORMATION
  Report Type: Spontaneous
  Country: US (occurrence: US)
  Receive Date: 20200530
  Receipt Date: 20200530
  Transmission Date: 20200714
  Serious: No
  Sender: FDA-Public Use
  Company Number: US-INSUD PHARMA-2005US00082

PATIENT

DRUGS (3)
  1. ESTARYLLA [Suspect]
     Active Substance: ETHINYL ESTRADIOL\NORGESTIMATE
     Indication: CONTRACEPTION
  2. ANXIETY AND DEPRESSION MEDICATIONS [Concomitant]
  3. ESTARYLLA [Suspect]
     Active Substance: ETHINYL ESTRADIOL\NORGESTIMATE
     Indication: MENSTRUATION IRREGULAR
     Dosage: ONE PILL PER DAY
     Route: 048
     Dates: start: 202003

REACTIONS (3)
  - Product use in unapproved indication [Unknown]
  - Metrorrhagia [Not Recovered/Not Resolved]
  - Circumstance or information capable of leading to medication error [Unknown]

NARRATIVE: CASE EVENT DATE: 20200515
